FAERS Safety Report 6711296-5 (Version None)
Quarter: 2010Q2

REPORT INFORMATION
  Report Type: 
  Country: None (occurrence: None)
  Receive Date: 20100505
  Receipt Date: 20100428
  Transmission Date: 20101027
  Serious: Yes (Hospitalization)
  Sender: FDA-Public Use
  Company Number: CH-BAYER-201023574GPV

PATIENT
  Age: 76 Year
  Sex: Male

DRUGS (7)
  1. ASPIRIN [Suspect]
     Indication: DRUG USE FOR UNKNOWN INDICATION
     Route: 048
     Dates: end: 20100306
  2. MARCUMAR [Suspect]
     Indication: DRUG USE FOR UNKNOWN INDICATION
     Route: 048
  3. TRANXILIUM [Concomitant]
  4. PRAVASTATIN [Concomitant]
     Route: 048
  5. DISTRANEURIN [Concomitant]
     Route: 048
  6. METOPROLOL SUCCINATE [Concomitant]
     Route: 042
  7. PANTOZOL [Concomitant]
     Route: 048

REACTIONS (5)
  - ANAEMIA [None]
  - CEREBRAL HAEMORRHAGE [None]
  - MELAENA [None]
  - PROTHROMBIN TIME PROLONGED [None]
  - RECTAL HAEMORRHAGE [None]
